FAERS Safety Report 16752978 (Version 4)
Quarter: 2020Q1

REPORT INFORMATION
  Report Type: Report from Study
  Country: None (occurrence: US)
  Receive Date: 20190829
  Receipt Date: 20200312
  Transmission Date: 20200409
  Serious: Yes (Hospitalization)
  Sender: FDA-Public Use
  Company Number: US-ABBVIE-19K-163-2838673-00

PATIENT
  Age: 60 Year
  Sex: Male

DRUGS (4)
  1. HUMIRA [Suspect]
     Active Substance: ADALIMUMAB
     Dosage: DAY 15
     Route: 058
     Dates: start: 20190416, end: 20190416
  2. HUMIRA [Suspect]
     Active Substance: ADALIMUMAB
     Dosage: DAY 29
     Route: 058
     Dates: start: 20190430, end: 2019
  3. HUMIRA [Suspect]
     Active Substance: ADALIMUMAB
     Indication: CROHN^S DISEASE
     Dosage: DAY ONE
     Route: 058
     Dates: start: 20190402, end: 20190402
  4. HUMIRA [Suspect]
     Active Substance: ADALIMUMAB
     Route: 058
     Dates: start: 2019

REACTIONS (12)
  - Scratch [Recovering/Resolving]
  - Skin laceration [Unknown]
  - Constipation [Recovering/Resolving]
  - Abdominal pain [Recovering/Resolving]
  - Postoperative wound infection [Unknown]
  - Renal failure [Recovering/Resolving]
  - Back pain [Not Recovered/Not Resolved]
  - Pneumonia [Recovering/Resolving]
  - Weight increased [Unknown]
  - Wrong technique in product usage process [Recovered/Resolved]
  - Fatigue [Recovering/Resolving]
  - Injection site bruising [Recovered/Resolved with Sequelae]

NARRATIVE: CASE EVENT DATE: 2019
